FAERS Safety Report 21289852 (Version 2)
Quarter: 2022Q4

REPORT INFORMATION
  Report Type: Spontaneous
  Country: US (occurrence: US)
  Receive Date: 20220902
  Receipt Date: 20221021
  Transmission Date: 20230113
  Serious: No
  Sender: FDA-Public Use
  Company Number: US-PFIZER INC-202201110777

PATIENT
  Age: 50 Year
  Sex: Female
  Weight: 95.197 kg

DRUGS (4)
  1. PAXLOVID [Suspect]
     Active Substance: NIRMATRELVIR\RITONAVIR
     Indication: COVID-19 treatment
     Dosage: 2 DF, 2X/DAY
     Dates: start: 20220830
  2. PAXLOVID [Suspect]
     Active Substance: NIRMATRELVIR\RITONAVIR
     Dosage: 3 DF, 2X/DAY
  3. PAXLOVID [Suspect]
     Active Substance: NIRMATRELVIR\RITONAVIR
     Dosage: 2 DF, 2X/DAY
  4. MOMETASONE FUROATE [Concomitant]
     Active Substance: MOMETASONE FUROATE
     Dosage: USING IT AT NIGHT
     Dates: start: 2022

REACTIONS (4)
  - Incorrect dose administered [Unknown]
  - Product packaging quantity issue [Unknown]
  - Product packaging issue [Unknown]
  - Illness [Unknown]
